FAERS Safety Report 14731572 (Version 1)
Quarter: 2018Q2

REPORT INFORMATION
  Report Type: Spontaneous
  Country: US (occurrence: US)
  Receive Date: 20180407
  Receipt Date: 20180407
  Transmission Date: 20180711
  Serious: No
  Sender: FDA-Public Use
  Company Number: US-TORRENT-00003220

PATIENT
  Age: 40 Year
  Sex: Female

DRUGS (1)
  1. ZOLPIDEM TARTRATE TABLET [Suspect]
     Active Substance: ZOLPIDEM TARTRATE
     Indication: INSOMNIA
     Dosage: 10 MG ONCE AT NIGHT
     Dates: start: 201707, end: 201707

REACTIONS (2)
  - Burning sensation [Recovered/Resolved]
  - Feeling abnormal [Recovered/Resolved]
